FAERS Safety Report 4746443-8 (Version None)
Quarter: 2005Q3

REPORT INFORMATION
  Report Type: 
  Country: None (occurrence: None)
  Receive Date: 20050817
  Receipt Date: 20050805
  Transmission Date: 20060218
  Serious: Yes (Hospitalization)
  Sender: FDA-Public Use
  Company Number: AU-NOVOPROD-246051

PATIENT

DRUGS (2)
  1. INSULIN DETEMIR PENFILL [Suspect]
     Dosage: 36 U, QD
     Route: 058
  2. NOVORAPID PENFILL [Suspect]
     Dosage: 52 U, QD
     Route: 058

REACTIONS (1)
  - RETINAL HAEMORRHAGE [None]
